FAERS Safety Report 9744774 (Version 2)
Quarter: 2013Q4

REPORT INFORMATION
  Report Type: Spontaneous
  Country: CA (occurrence: CA)
  Receive Date: 20131210
  Receipt Date: 20131211
  Transmission Date: 20140711
  Serious: Yes (Other)
  Sender: FDA-Public Use
  Company Number: CA-ROCHE-1317070

PATIENT
  Age: 34 Year
  Sex: Female

DRUGS (1)
  1. HERCEPTIN [Suspect]
     Indication: HER-2 POSITIVE GASTRIC CANCER
     Route: 065

REACTIONS (1)
  - Disease progression [Unknown]
